FAERS Safety Report 12696885 (Version 1)
Quarter: 2016Q3

REPORT INFORMATION
  Report Type: Spontaneous
  Country: US (occurrence: None)
  Receive Date: 20160829
  Receipt Date: 20160829
  Transmission Date: 20161109
  Serious: Yes (Death)
  Sender: FDA-Public Use
  Company Number: None

PATIENT
  Age: 42 Year
  Sex: Female

DRUGS (6)
  1. ZORTRESS [Suspect]
     Active Substance: EVEROLIMUS
     Indication: HEART TRANSPLANT
     Route: 048
     Dates: start: 20160506, end: 201608
  2. FLUCONAZOLE. [Concomitant]
     Active Substance: FLUCONAZOLE
  3. ZORTRESS [Suspect]
     Active Substance: EVEROLIMUS
     Indication: POST PROCEDURAL COMPLICATION
     Dosage: 0.25MG QPM PO
     Route: 048
     Dates: start: 20160506, end: 201608
  4. ZORTRESS [Suspect]
     Active Substance: EVEROLIMUS
     Indication: POST PROCEDURAL COMPLICATION
     Route: 048
     Dates: start: 20160506, end: 201608
  5. ZORTRESS [Suspect]
     Active Substance: EVEROLIMUS
     Indication: HEART TRANSPLANT
     Dosage: 0.25MG QPM PO
     Route: 048
     Dates: start: 20160506, end: 201608
  6. NEUPOGEN [Concomitant]
     Active Substance: FILGRASTIM

REACTIONS (2)
  - Cardiac failure [None]
  - Neoplasm malignant [None]

NARRATIVE: CASE EVENT DATE: 20160811
